FAERS Safety Report 5805039-7 (Version None)
Quarter: 2008Q3

REPORT INFORMATION
  Report Type: 
  Country: None (occurrence: None)
  Receive Date: 20080709
  Receipt Date: 20080703
  Transmission Date: 20090109
  Serious: Yes (Hospitalization)
  Sender: FDA-Public Use
  Company Number: GB-BOEHRINGER INGELHEIM GMBH, GERMANY-2008-UK-01335UK

PATIENT
  Age: 84 Year
  Sex: Female

DRUGS (4)
  1. MOBIC [Suspect]
     Indication: OSTEOARTHRITIS
     Route: 048
     Dates: end: 20080616
  2. COD LIVER OIL [Concomitant]
     Dosage: 1 DOSE FORM
     Route: 048
     Dates: start: 20070101
  3. ACETAMINOPHEN [Concomitant]
     Indication: ARTHRALGIA
     Route: 048
     Dates: start: 20080101
  4. XALATAN [Concomitant]
     Indication: GLAUCOMA
     Dosage: 1 DOSAGE FORM
     Route: 031
     Dates: start: 20071101

REACTIONS (6)
  - DIARRHOEA [None]
  - FAECES DISCOLOURED [None]
  - HAEMORRHAGE URINARY TRACT [None]
  - MELAENA [None]
  - RECTAL HAEMORRHAGE [None]
  - VAGINAL HAEMORRHAGE [None]
